FAERS Safety Report 4264040-8 (Version None)
Quarter: 2004Q1

REPORT INFORMATION
  Report Type: 
  Country: None (occurrence: None)
  Receive Date: 20040102
  Receipt Date: 20031211
  Transmission Date: 20041129
  Serious: Yes (Death, Hospitalization)
  Sender: FDA-Public Use
  Company Number: EWC031237379

PATIENT
  Age: 53 Year
  Sex: Female
  Weight: 42 kg

DRUGS (12)
  1. GEMCITABINE HYDROCHLORIDE-IV (GEMCITABINE) [Suspect]
     Indication: BREAST CANCER
     Dosage: 1280 MG/1 OTHER
     Route: 050
  2. CISPLATIN [Suspect]
     Indication: BREAST CANCER
     Dosage: 38 MG/1 OTHER
     Route: 050
  3. SEROTONE (AZASETRON HYDROCHLORIDE) [Concomitant]
  4. DEXAMETHASONE [Concomitant]
  5. LASIX [Concomitant]
  6. CEFMETAZOLE [Concomitant]
  7. FORTIMICIN [Concomitant]
  8. COUGH SYRUP [Concomitant]
  9. TYLENOL [Concomitant]
  10. ZYRTEC [Concomitant]
  11. BROFLEX (TRIHEXYPHENIDYL HYDROCHLORIDE) [Concomitant]
  12. AVIL (PHENIRAMINE AMINOSALICYLATE) [Concomitant]

REACTIONS (2)
  - PLATELET COUNT DECREASED [None]
  - RESPIRATORY FAILURE [None]
